FAERS Safety Report 11024800 (Version 1)
Quarter: 2015Q2

REPORT INFORMATION
  Report Type: Spontaneous
  Country: BR (occurrence: BR)
  Receive Date: 20150414
  Receipt Date: 20150414
  Transmission Date: 20150821
  Serious: Yes (Hospitalization)
  Sender: FDA-Public Use
  Company Number: BR-009507513-1504BRA004918

PATIENT
  Sex: Female
  Weight: 68 kg

DRUGS (1)
  1. NUVARING [Suspect]
     Active Substance: ETHINYL ESTRADIOL\ETONOGESTREL
     Indication: CONTRACEPTION
     Dosage: 1 DF, QM (THREE WEEKS IN SITU WITH ONE WEEK RING FREE)
     Route: 067
     Dates: start: 2012

REACTIONS (1)
  - Varicose vein operation [Recovered/Resolved]

NARRATIVE: CASE EVENT DATE: 2013
